FAERS Safety Report 9785866 (Version 1)
Quarter: 2013Q4

REPORT INFORMATION
  Report Type: Spontaneous
  Country: FR (occurrence: None)
  Receive Date: 20131223
  Receipt Date: 20131223
  Transmission Date: 20140711
  Serious: Yes (Hospitalization)
  Sender: FDA-Public Use
  Company Number: IPC201312-000516

PATIENT
  Age: 70 Year
  Sex: Male

DRUGS (7)
  1. WARFARIN [Suspect]
     Indication: ATRIAL FIBRILLATION
  2. ACENOCOUMAROL [Suspect]
     Indication: ATRIAL FIBRILLATION
  3. SOTALOL (SOTALOL) (SOTALOL) [Concomitant]
  4. LECARNIDIPINE (LECARNIDIPINE) (LECARNIDIPINE) [Concomitant]
  5. ENALAPRIL (ENALAPRIL) (ENALAPRIL) [Concomitant]
  6. ALLOPURINOL (ALLOPURINOL) (ALLOPURINOL) [Concomitant]
  7. VENLAFAXINE (VENLAFAXINE) (VENLAFAXINE) [Concomitant]

REACTIONS (14)
  - Nephropathy [None]
  - Normochromic normocytic anaemia [None]
  - Orthopnoea [None]
  - Fluid retention [None]
  - Renal failure acute [None]
  - Folate deficiency [None]
  - International normalised ratio increased [None]
  - Renal tubular necrosis [None]
  - Renal tubular disorder [None]
  - Obstruction [None]
  - Blood pressure systolic increased [None]
  - Rales [None]
  - Overdose [None]
  - Haemodialysis [None]
